FAERS Safety Report 7036986-9 (Version None)
Quarter: 2010Q4

REPORT INFORMATION
  Report Type: 
  Country: None (occurrence: None)
  Receive Date: 20101011
  Receipt Date: 20101007
  Transmission Date: 20110411
  Serious: Yes (Death, Hospitalization)
  Sender: FDA-Public Use
  Company Number: GB-BRISTOL-MYERS SQUIBB COMPANY-14701114

PATIENT
  Age: 70 Year
  Sex: Male

DRUGS (3)
  1. CETUXIMAB [Suspect]
     Indication: OESOPHAGEAL CARCINOMA
     Dosage: RECENT INF:23JUN2010;
     Route: 042
     Dates: start: 20090506, end: 20090623
  2. CISPLATIN [Suspect]
     Indication: OESOPHAGEAL CARCINOMA
     Dosage: LAST DOSE ON 22JUN2009;DOSE REDUCED TO 30MG/ME2;RECENT INF:23JUN2010;
     Route: 042
     Dates: start: 20090506, end: 20090623
  3. XELODA [Suspect]
     Indication: OESOPHAGEAL CARCINOMA
     Dosage: CAPECITABINE TABS,RECENT DOSE ON 26,27 OR 28JUN09
     Route: 048
     Dates: start: 20090506, end: 20090101

REACTIONS (2)
  - CEREBRAL ISCHAEMIA [None]
  - GASTROINTESTINAL HAEMORRHAGE [None]
